FAERS Safety Report 5670444-9 (Version None)
Quarter: 2008Q1

REPORT INFORMATION
  Report Type: 
  Country: None (occurrence: None)
  Receive Date: 20080318
  Receipt Date: 20080304
  Transmission Date: 20080703
  Serious: Yes (Death, Hospitalization)
  Sender: FDA-Public Use
  Company Number: ES-ELI_LILLY_AND_COMPANY-ES200803000759

PATIENT
  Age: 81 Year
  Sex: Female

DRUGS (8)
  1. FORTEO [Suspect]
     Indication: OSTEOPOROSIS
     Dosage: 20 UG, UNKNOWN
     Route: 058
     Dates: start: 20070101
  2. NATECAL [Concomitant]
     Dosage: UNK, UNKNOWN
  3. GELOCATIL [Concomitant]
     Dosage: UNK, UNKNOWN
  4. OMEPRAZOLE [Concomitant]
     Dosage: UNK, UNKNOWN
  5. TARDYFERON [Concomitant]
     Indication: ANAEMIA
     Dosage: UNK, UNKNOWN
  6. DAFLON /00426001/ [Concomitant]
     Dosage: UNK, UNKNOWN
  7. ADIRO [Concomitant]
     Dosage: UNK, UNKNOWN
  8. CIPRALEX [Concomitant]
     Dosage: UNK, UNKNOWN

REACTIONS (3)
  - COUGH [None]
  - LUNG INFECTION [None]
  - PYREXIA [None]
